FAERS Safety Report 21305464 (Version 1)
Quarter: 2022Q3

REPORT INFORMATION
  Report Type: Spontaneous
  Country: FR (occurrence: FR)
  Receive Date: 20220908
  Receipt Date: 20220908
  Transmission Date: 20221027
  Serious: Yes (Other)
  Sender: FDA-Public Use
  Company Number: None

PATIENT
  Age: 58 Year
  Sex: Male

DRUGS (2)
  1. ARIPIPRAZOLE [Suspect]
     Active Substance: ARIPIPRAZOLE
     Indication: Schizophrenia
     Dosage: 10 MILLIGRAM DAILY; 10 MG/D,   DURATION : 20 MONTHS, UNIT DOSE :  10 MG , FREQUENCY TIME : 24  HOURS
     Route: 065
     Dates: start: 202101, end: 202208
  2. CLOZAPINE [Suspect]
     Active Substance: CLOZAPINE
     Indication: Schizophrenia
     Dosage: 500 MILLIGRAM DAILY; 500 MG/D, UNIT DOSE :  500MG, FREQUENCY TIME : 24  HOURS, DURATION : 37 MONTHS
     Route: 065
     Dates: start: 201912, end: 202208

REACTIONS (1)
  - Cutaneous T-cell lymphoma [Unknown]

NARRATIVE: CASE EVENT DATE: 20220501
